FAERS Safety Report 10509129 (Version 2)
Quarter: 2015Q2

REPORT INFORMATION
  Report Type: Spontaneous
  Country: US (occurrence: US)
  Receive Date: 20141009
  Receipt Date: 20150506
  Transmission Date: 20150821
  Serious: Yes (Hospitalization, Other)
  Sender: FDA-Public Use
  Company Number: US-BAUSCH-BL-2014-006405

PATIENT
  Sex: Female

DRUGS (1)
  1. XENAZINE [Suspect]
     Active Substance: TETRABENAZINE
     Indication: HUNTINGTON^S DISEASE
     Route: 048
     Dates: start: 20120326

REACTIONS (5)
  - Hospitalisation [Unknown]
  - White blood cell count increased [Unknown]
  - Huntington^s disease [Unknown]
  - Platelet count increased [Unknown]
  - Menometrorrhagia [Unknown]
